FAERS Safety Report 20475163 (Version 3)
Quarter: 2022Q3

REPORT INFORMATION
  Report Type: Report from Study
  Country: US (occurrence: US)
  Receive Date: 20220215
  Receipt Date: 20220901
  Transmission Date: 20221027
  Serious: No
  Sender: FDA-Public Use
  Company Number: US-BIOVITRUM-2022US01567

PATIENT
  Sex: Female

DRUGS (2)
  1. KINERET [Suspect]
     Active Substance: ANAKINRA
     Indication: Rheumatoid arthritis
     Dates: start: 20220122
  2. KINERET [Suspect]
     Active Substance: ANAKINRA
     Dates: start: 20220122

REACTIONS (8)
  - Night sweats [Unknown]
  - Nasopharyngitis [Unknown]
  - Infection [Unknown]
  - Lymphocele [Unknown]
  - COVID-19 [Unknown]
  - Injection site swelling [Unknown]
  - Injection site pain [Unknown]
  - Product dose omission issue [Unknown]
